FAERS Safety Report 16677822 (Version 1)
Quarter: 2019Q3

REPORT INFORMATION
  Report Type: Spontaneous
  Country: DE (occurrence: DE)
  Receive Date: 20190807
  Receipt Date: 20190807
  Transmission Date: 20191004
  Serious: Yes (Other)
  Sender: FDA-Public Use
  Company Number: DE-TEVA-2019-DE-1087896

PATIENT
  Age: 71 Year
  Sex: Male

DRUGS (27)
  1. VANCOMYCIN [Suspect]
     Active Substance: VANCOMYCIN
     Indication: ENDOPHTHALMITIS
  2. CEFTAZIDIME. [Suspect]
     Active Substance: CEFTAZIDIME
     Indication: ULCERATIVE KERATITIS
     Route: 050
  3. CEFTAZIDIME. [Suspect]
     Active Substance: CEFTAZIDIME
     Indication: ENDOPHTHALMITIS
  4. MOXIFLOXACIN. [Suspect]
     Active Substance: MOXIFLOXACIN
     Indication: STAPHYLOCOCCAL INFECTION
  5. LEVOFLOXACIN. [Suspect]
     Active Substance: LEVOFLOXACIN
     Indication: ENDOPHTHALMITIS
  6. DEXAMETHASONE. [Suspect]
     Active Substance: DEXAMETHASONE
     Indication: STAPHYLOCOCCAL INFECTION
  7. MOXIFLOXACIN. [Suspect]
     Active Substance: MOXIFLOXACIN
     Indication: ENDOPHTHALMITIS
  8. MINOCYCLINE [Suspect]
     Active Substance: MINOCYCLINE HYDROCHLORIDE
     Indication: ENDOPHTHALMITIS
  9. MINOCYCLINE [Suspect]
     Active Substance: MINOCYCLINE HYDROCHLORIDE
     Indication: STAPHYLOCOCCAL INFECTION
  10. LEVOFLOXACIN. [Suspect]
     Active Substance: LEVOFLOXACIN
     Indication: ULCERATIVE KERATITIS
     Route: 050
  11. DEXAMETHASONE. [Suspect]
     Active Substance: DEXAMETHASONE
     Indication: ULCERATIVE KERATITIS
     Route: 050
  12. CEFTAZIDIME. [Suspect]
     Active Substance: CEFTAZIDIME
     Indication: STAPHYLOCOCCAL INFECTION
  13. MOXIFLOXACIN. [Suspect]
     Active Substance: MOXIFLOXACIN
     Indication: ULCERATIVE KERATITIS
     Route: 048
  14. LEVOFLOXACIN. [Suspect]
     Active Substance: LEVOFLOXACIN
     Indication: STAPHYLOCOCCAL INFECTION
  15. CYCLOPENTOLATE. [Suspect]
     Active Substance: CYCLOPENTOLATE
     Indication: ULCERATIVE KERATITIS
     Route: 050
  16. VANCOMYCIN [Suspect]
     Active Substance: VANCOMYCIN
     Indication: ULCERATIVE KERATITIS
     Route: 050
  17. VANCOMYCIN [Suspect]
     Active Substance: VANCOMYCIN
     Indication: STAPHYLOCOCCAL INFECTION
  18. POLYMYXINB/NEOMYCIN/GRAMICIDIN [Suspect]
     Active Substance: GRAMICIDIN\NEOMYCIN\POLYMYXIN B SULFATE
     Indication: ENDOPHTHALMITIS
  19. CYCLOPENTOLATE. [Suspect]
     Active Substance: CYCLOPENTOLATE
     Indication: ENDOPHTHALMITIS
  20. TIMOLOL. [Suspect]
     Active Substance: TIMOLOL
     Indication: ULCERATIVE KERATITIS
     Route: 050
  21. TIMOLOL. [Suspect]
     Active Substance: TIMOLOL
     Indication: ENDOPHTHALMITIS
  22. DEXAMETHASONE. [Suspect]
     Active Substance: DEXAMETHASONE
     Indication: ENDOPHTHALMITIS
  23. POLYMYXINB/NEOMYCIN/GRAMICIDIN [Suspect]
     Active Substance: GRAMICIDIN\NEOMYCIN\POLYMYXIN B SULFATE
     Indication: STAPHYLOCOCCAL INFECTION
  24. MINOCYCLINE [Suspect]
     Active Substance: MINOCYCLINE HYDROCHLORIDE
     Indication: ULCERATIVE KERATITIS
     Route: 048
  25. POLYMYXINB/NEOMYCIN/GRAMICIDIN [Suspect]
     Active Substance: GRAMICIDIN\NEOMYCIN\POLYMYXIN B SULFATE
     Indication: ULCERATIVE KERATITIS
     Route: 050
  26. CYCLOPENTOLATE. [Suspect]
     Active Substance: CYCLOPENTOLATE
     Indication: STAPHYLOCOCCAL INFECTION
  27. TIMOLOL. [Suspect]
     Active Substance: TIMOLOL
     Indication: STAPHYLOCOCCAL INFECTION

REACTIONS (1)
  - Drug ineffective [Unknown]
